FAERS Safety Report 8808092 (Version 1)
Quarter: 2012Q4

REPORT INFORMATION
  Report Type: 
  Country: US (occurrence: US)
  Receive Date: 20120925
  Receipt Date: 20120925
  Transmission Date: 20130627
  Serious: No
  Sender: FDA-Public Use
  Company Number: US-PFIZER INC-2012236445

PATIENT
  Age: 68 Year
  Sex: Female
  Weight: 63.04 kg

DRUGS (3)
  1. CALTRATE WITH VITAMIN D [Suspect]
     Indication: BONE DISORDER
     Dosage: unknown dose one tablet two times a day
     Dates: start: 2012, end: 20120922
  2. AMLODIPINE [Interacting]
     Indication: HYPERTENSION
     Dosage: 5 mg, daily
  3. CORGARD [Interacting]
     Indication: HYPERTENSION
     Dosage: 20 mg, daily

REACTIONS (3)
  - Drug interaction [Unknown]
  - Hypotension [Recovered/Resolved]
  - Dizziness [Recovered/Resolved]
